FAERS Safety Report 16056506 (Version 1)
Quarter: 2019Q1

REPORT INFORMATION
  Report Type: Spontaneous
  Country: US (occurrence: US)
  Receive Date: 20190309
  Receipt Date: 20190309
  Transmission Date: 20190418
  Serious: No
  Sender: FDA-Public Use
  Company Number: None

PATIENT
  Age: 54 Year
  Sex: Female
  Weight: 78.75 kg

DRUGS (7)
  1. AMERGE/NARATRIPTAN [Concomitant]
  2. ACETAMINOPHEN. [Concomitant]
     Active Substance: ACETAMINOPHEN
  3. BUPROPION SR [Concomitant]
     Active Substance: BUPROPION HYDROCHLORIDE
  4. IBUPROPHEN [Concomitant]
     Active Substance: IBUPROFEN
  5. BENADRYL [Concomitant]
     Active Substance: DIPHENHYDRAMINE HYDROCHLORIDE
  6. SSD CREAM [Suspect]
     Active Substance: SILVER SULFADIAZINE
     Indication: THERMAL BURN
     Dosage: ?          QUANTITY:50 GRAMS OF TOPICAL;?
     Route: 061
     Dates: start: 20190309, end: 20190309
  7. CITALOPRAM [Concomitant]
     Active Substance: CITALOPRAM HYDROBROMIDE

REACTIONS (5)
  - Application site pain [None]
  - Wound haemorrhage [None]
  - Inflammation of wound [None]
  - Skin irritation [None]
  - Pruritus [None]

NARRATIVE: CASE EVENT DATE: 20190309
